FAERS Safety Report 24368141 (Version 1)
Quarter: 2024Q3

REPORT INFORMATION
  Report Type: Spontaneous
  Country: US (occurrence: US)
  Receive Date: 20240926
  Receipt Date: 20240926
  Transmission Date: 20241017
  Serious: Yes (Death, Hospitalization, Other)
  Sender: REGENERON
  Company Number: US-REGENERON PHARMACEUTICALS, INC.-2024-128501

PATIENT
  Age: 82 Year
  Sex: Male

DRUGS (1)
  1. LIBTAYO [Suspect]
     Active Substance: CEMIPLIMAB-RWLC
     Indication: Basal cell carcinoma metastatic

REACTIONS (5)
  - Myocarditis [Fatal]
  - Cardiac arrest [Fatal]
  - Atrioventricular block [Unknown]
  - Pulmonary embolism [Unknown]
  - Pleural effusion [Unknown]
